FAERS Safety Report 17181156 (Version 2)
Quarter: 2019Q4

REPORT INFORMATION
  Report Type: Spontaneous
  Country: SE (occurrence: SE)
  Receive Date: 20191219
  Receipt Date: 20191224
  Transmission Date: 20200122
  Serious: Yes (Other)
  Sender: FDA-Public Use
  Company Number: NVSC2019SE074997

PATIENT
  Sex: Female

DRUGS (1)
  1. EBETREX 20 MG/ML [Suspect]
     Active Substance: METHOTREXATE SODIUM
     Indication: PSORIATIC ARTHROPATHY
     Dosage: 20 MG/ML, UNKNOWN
     Route: 065
     Dates: end: 20191206

REACTIONS (2)
  - Psoriatic arthropathy [Unknown]
  - Product dose omission [Unknown]
